FAERS Safety Report 7668862-2 (Version None)
Quarter: 2011Q3

REPORT INFORMATION
  Report Type: 
  Country: None (occurrence: None)
  Receive Date: 20110808
  Receipt Date: 20110802
  Transmission Date: 20111222
  Serious: No
  Sender: FDA-Public Use
  Company Number: US-PFIZER INC-2011176005

PATIENT
  Sex: Female

DRUGS (2)
  1. PREMPHASE (PREMARIN;CYCRIN 14/14) [Suspect]
     Indication: OFF LABEL USE
  2. PREMPHASE (PREMARIN;CYCRIN 14/14) [Suspect]
     Indication: MENSTRUAL DISORDER
     Dosage: 0.625/5MG DAILY
     Dates: start: 20110721, end: 20110728

REACTIONS (4)
  - MENSTRUATION IRREGULAR [None]
  - HEADACHE [None]
  - ABDOMINAL DISCOMFORT [None]
  - FLUID RETENTION [None]
